FAERS Safety Report 9393660 (Version 1)
Quarter: 2013Q3

REPORT INFORMATION
  Report Type: Spontaneous
  Country: AT (occurrence: None)
  Receive Date: 20130705
  Receipt Date: 20130705
  Transmission Date: 20140515
  Serious: Yes (Hospitalization)
  Sender: FDA-Public Use
  Company Number: 2013P1010832

PATIENT
  Age: 64 Year
  Sex: Male

DRUGS (3)
  1. CIPROFLOXACIN [Suspect]
     Indication: PNEUMONIA
  2. ATORVASTATIN [Concomitant]
  3. TIGECYCLINE [Concomitant]

REACTIONS (3)
  - Rhabdomyolysis [None]
  - Renal impairment [None]
  - Dialysis [None]
